FAERS Safety Report 5524698-X (Version None)
Quarter: 2007Q4

REPORT INFORMATION
  Report Type: 
  Country: None (occurrence: None)
  Receive Date: 20071123
  Receipt Date: 20071119
  Transmission Date: 20080405
  Serious: Yes (Hospitalization)
  Sender: FDA-Public Use
  Company Number: PHRM2007FR02610

PATIENT
  Age: 4 Year
  Sex: Male
  Weight: 11 kg

DRUGS (8)
  1. TEGRETOL [Suspect]
     Indication: EPILEPSY
     Dosage: 7.5 ML, BID
     Route: 048
     Dates: start: 20060901, end: 20070101
  2. TEGRETOL [Suspect]
     Dosage: 7 ML, BID
     Route: 048
     Dates: start: 20070101, end: 20070501
  3. TEGRETOL [Suspect]
     Route: 048
     Dates: start: 20070501, end: 20070601
  4. LAMICTAL [Suspect]
     Indication: EPILEPSY
     Dosage: 35 MG, BID
     Route: 048
     Dates: start: 20050301
  5. SABRIL [Suspect]
     Indication: EPILEPSY
     Dosage: 250 MG, BID
     Route: 048
     Dates: start: 20070401
  6. L-THYROXINE [Concomitant]
  7. HYDROCORTISONE [Concomitant]
  8. FLIXOTIDE ^GLAXO^ [Concomitant]

REACTIONS (5)
  - ANTICONVULSANT DRUG LEVEL ABOVE THERAPEUTIC [None]
  - DRUG INTERACTION [None]
  - HYPOTONIA [None]
  - MALAISE [None]
  - VOMITING [None]
